FAERS Safety Report 17670195 (Version 1)
Quarter: 2020Q2

REPORT INFORMATION
  Report Type: Spontaneous
  Country: US (occurrence: US)
  Receive Date: 20200414
  Receipt Date: 20200414
  Transmission Date: 20200713
  Serious: No
  Sender: FDA-Public Use
  Company Number: None

PATIENT
  Age: 66 Year
  Sex: Male

DRUGS (1)
  1. TAFINLAR [Suspect]
     Active Substance: DABRAFENIB MESYLATE
     Route: 048
     Dates: start: 201910

REACTIONS (4)
  - Pyrexia [None]
  - Therapy change [None]
  - Syncope [None]
  - Weight decreased [None]

NARRATIVE: CASE EVENT DATE: 20200401
